FAERS Safety Report 7068290-7 (Version None)
Quarter: 2010Q4

REPORT INFORMATION
  Report Type: 
  Country: None (occurrence: None)
  Receive Date: 20101028
  Receipt Date: 20101022
  Transmission Date: 20110411
  Serious: Yes (Death, Hospitalization, Congenital Anomaly)
  Sender: FDA-Public Use
  Company Number: A0681252A

PATIENT
  Sex: Female
  Weight: 1 kg

DRUGS (3)
  1. PAXIL [Suspect]
     Indication: DEPRESSION
     Dates: start: 19990601
  2. PAROXETINE HYDROCHLORIDE [Suspect]
     Indication: STRESS
     Dosage: 20MG PER DAY
     Dates: start: 20040101, end: 20041001
  3. VITAMIN AND MINERAL PRENATAL SUPPLEMENT W/ FOLIC ACID CAP [Concomitant]

REACTIONS (9)
  - BRONCHOPULMONARY DYSPLASIA [None]
  - CARDIAC FAILURE [None]
  - DRUG EXPOSURE DURING PREGNANCY [None]
  - HEART BLOCK CONGENITAL [None]
  - HEART DISEASE CONGENITAL [None]
  - PNEUMOTHORAX [None]
  - RESPIRATORY ARREST [None]
  - RESPIRATORY DISTRESS [None]
  - RESPIRATORY FAILURE [None]
